FAERS Safety Report 16249161 (Version 1)
Quarter: 2019Q2

REPORT INFORMATION
  Report Type: Spontaneous
  Country: FR (occurrence: FR)
  Receive Date: 20190429
  Receipt Date: 20190429
  Transmission Date: 20190711
  Serious: Yes (Hospitalization)
  Sender: FDA-Public Use
  Company Number: FR-TEVA-2019-FR-1042061

PATIENT
  Age: 93 Year
  Sex: Female

DRUGS (6)
  1. HEMIGOXINE NATIVELLE 0,125 MG, COMPRIM? [Interacting]
     Active Substance: DIGOXIN
     Indication: CARDIAC FAILURE
     Route: 048
     Dates: end: 20181210
  2. ALDACTONE [Concomitant]
     Active Substance: SPIRONOLACTONE
     Indication: CARDIAC FAILURE
     Dosage: 25 MILLIGRAM DAILY;
     Route: 048
  3. AMIODARONE (CHLORHYDRATE D^) [Suspect]
     Active Substance: AMIODARONE HYDROCHLORIDE
     Indication: ATRIAL FIBRILLATION
     Dosage: 200 MILLIGRAM DAILY;
     Route: 048
  4. ELIQUIS [Concomitant]
     Active Substance: APIXABAN
     Indication: ATRIAL FIBRILLATION
     Dosage: 5 MILLIGRAM DAILY;
     Route: 048
  5. ROSUVASTATINE [Concomitant]
     Active Substance: ROSUVASTATIN
     Indication: HYPERCHOLESTEROLAEMIA
     Dosage: 10 MILLIGRAM DAILY;
     Route: 048
  6. LASILIX SPECIAL 500 MG, COMPRIM? S?CABLE [Concomitant]
     Active Substance: FUROSEMIDE
     Indication: CHRONIC KIDNEY DISEASE
     Dosage: 500 MILLIGRAM DAILY;
     Route: 048

REACTIONS (3)
  - Cardioactive drug level increased [Recovered/Resolved]
  - Decreased appetite [Recovered/Resolved]
  - Drug interaction [Unknown]

NARRATIVE: CASE EVENT DATE: 201812
